FAERS Safety Report 20937870 (Version 1)
Quarter: 2022Q2

REPORT INFORMATION
  Report Type: Spontaneous
  Country: GR (occurrence: GR)
  Receive Date: 20220609
  Receipt Date: 20220609
  Transmission Date: 20220721
  Serious: Yes (Hospitalization)
  Sender: FDA-Public Use
  Company Number: GR-LUPIN PHARMACEUTICALS INC.-2022-08289

PATIENT
  Age: 75 Year
  Sex: Female

DRUGS (22)
  1. METRONIDAZOLE [Suspect]
     Active Substance: METRONIDAZOLE
     Indication: Immune-mediated enterocolitis
     Dosage: 500 MG, TID
     Route: 042
     Dates: start: 2020
  2. METRONIDAZOLE [Suspect]
     Active Substance: METRONIDAZOLE
     Dosage: UNK, PRESCRIBED FOR 14 DAYS
     Route: 048
     Dates: start: 2020
  3. CIPROFLOXACIN [Suspect]
     Active Substance: CIPROFLOXACIN
     Indication: Immune-mediated enterocolitis
     Dosage: PRESCRIBED FOR 14 DAYS
     Route: 048
     Dates: start: 2020
  4. CEFOXITIN [Suspect]
     Active Substance: CEFOXITIN SODIUM
     Indication: Immune-mediated enterocolitis
     Dosage: 2 GRAM, TID
     Route: 065
     Dates: start: 2020
  5. AMIKACIN [Suspect]
     Active Substance: AMIKACIN
     Indication: Immune-mediated enterocolitis
     Dosage: 1 GRAM, QD
     Route: 065
     Dates: start: 2020
  6. TIGECYCLINE [Suspect]
     Active Substance: TIGECYCLINE
     Indication: Immune-mediated enterocolitis
     Dosage: 50 MG, QD
     Route: 065
     Dates: start: 2020
  7. ANIDULAFUNGIN [Suspect]
     Active Substance: ANIDULAFUNGIN
     Indication: Immune-mediated enterocolitis
     Dosage: 100 MG, QD
     Route: 065
     Dates: start: 2020
  8. CARBOPLATIN [Concomitant]
     Active Substance: CARBOPLATIN
     Indication: Lung adenocarcinoma
     Dosage: UNK, AUC 5
     Route: 065
     Dates: start: 202007
  9. PEMETREXED [Concomitant]
     Active Substance: PEMETREXED
     Indication: Lung adenocarcinoma
     Dosage: 500 MILLIGRAM/SQ. METER
     Route: 065
     Dates: start: 202007
  10. TRAMADOL [Concomitant]
     Active Substance: TRAMADOL
     Indication: Product used for unknown indication
     Dosage: 50 MG
     Route: 048
  11. BUPRENORPHINE [Concomitant]
     Active Substance: BUPRENORPHINE
     Indication: Product used for unknown indication
     Dosage: 35 MICROGRAM, 1 HOUR
     Route: 062
  12. ACETAMINOPHEN\CAFFEINE\DIHYDROCODEINE BITARTRATE [Concomitant]
     Active Substance: ACETAMINOPHEN\CAFFEINE\DIHYDROCODEINE BITARTRATE
     Indication: Product used for unknown indication
     Dosage: 1 DOSAGE FORM
     Route: 065
  13. ASPIRIN [Concomitant]
     Active Substance: ASPIRIN
     Indication: Product used for unknown indication
     Dosage: 100 MG, QD
     Route: 065
  14. ATORVASTATIN [Concomitant]
     Active Substance: ATORVASTATIN
     Indication: Product used for unknown indication
     Dosage: 20 MG, QD
     Route: 065
  15. FLUOXETINE [Concomitant]
     Active Substance: FLUOXETINE HYDROCHLORIDE
     Indication: Product used for unknown indication
     Dosage: 20 MG, QD
     Route: 065
  16. BROMAZEPAM [Concomitant]
     Active Substance: BROMAZEPAM
     Indication: Product used for unknown indication
     Dosage: 1.5 MG, QD
     Route: 065
  17. LEVOCETIRIZINE [Concomitant]
     Active Substance: LEVOCETIRIZINE
     Indication: Product used for unknown indication
     Dosage: 5 MG
     Route: 065
  18. FOLIC ACID [Concomitant]
     Active Substance: FOLIC ACID
     Indication: Product used for unknown indication
     Dosage: 5 MG, QD
     Route: 065
  19. FENTANYL [Concomitant]
     Active Substance: FENTANYL
     Indication: Product used for unknown indication
     Dosage: UNK
     Route: 060
  20. NALOXEGOL [Concomitant]
     Active Substance: NALOXEGOL
     Indication: Product used for unknown indication
     Dosage: UNK
     Route: 060
  21. ENALAPRIL MALEATE;LERCANIDIPINE HYDROCHLORIDE [Concomitant]
     Indication: Product used for unknown indication
     Dosage: UNK
     Route: 065
  22. PEMBROLIZUMAB [Concomitant]
     Active Substance: PEMBROLIZUMAB
     Indication: Lung adenocarcinoma
     Dosage: 200 MG, CYCLICAL; FLAT DOSE
     Route: 065
     Dates: start: 202007

REACTIONS (3)
  - Drug ineffective for unapproved indication [Unknown]
  - Off label use [Unknown]
  - Diarrhoea [Unknown]
